FAERS Safety Report 7423560-5 (Version None)
Quarter: 2011Q2

REPORT INFORMATION
  Report Type: 
  Country: None (occurrence: None)
  Receive Date: 20110419
  Receipt Date: 20110413
  Transmission Date: 20111010
  Serious: Yes (Death)
  Sender: FDA-Public Use
  Company Number: PHHY2011JP31755

PATIENT
  Sex: Male
  Weight: 58 kg

DRUGS (3)
  1. ADALAT CC [Concomitant]
     Indication: HYPERTENSION
     Dosage: 40 MG, UNK
     Route: 048
     Dates: start: 20100720, end: 20100726
  2. HYPOCA [Concomitant]
     Indication: HYPERTENSION
     Dosage: 15 MG, UNK
     Route: 048
     Dates: start: 20100726, end: 20100908
  3. ALISKIREN [Suspect]
     Dosage: 150 MG, DAILY BEFORE MEAL
     Route: 048
     Dates: start: 20100707

REACTIONS (1)
  - DEATH [None]
